FAERS Safety Report 6517991-5 (Version None)
Quarter: 2009Q4

REPORT INFORMATION
  Report Type: 
  Country: None (occurrence: None)
  Receive Date: 20091224
  Receipt Date: 20091217
  Transmission Date: 20100525
  Serious: Yes (Hospitalization)
  Sender: FDA-Public Use
  Company Number: PHHO2008US14690

PATIENT
  Sex: Male
  Weight: 77 kg

DRUGS (1)
  1. CERTICAN [Suspect]
     Indication: HEART TRANSPLANT
     Dosage: 0.75 MG
     Route: 048
     Dates: start: 20080401

REACTIONS (1)
  - PERICARDIAL EFFUSION [None]
